FAERS Safety Report 7738237-6 (Version None)
Quarter: 2011Q3

REPORT INFORMATION
  Report Type: 
  Country: None (occurrence: None)
  Receive Date: 20110908
  Receipt Date: 20110829
  Transmission Date: 20111222
  Serious: Yes (Other)
  Sender: FDA-Public Use
  Company Number: FR-VERTEX PHARMACEUTICALS INC.-AE-2011-000946

PATIENT
  Sex: Male
  Weight: 82 kg

DRUGS (9)
  1. PLAVIX [Concomitant]
     Route: 048
  2. ACETAMINOPHEN [Concomitant]
     Indication: HEADACHE
     Route: 048
  3. BISOPROLOL FUMARATE [Concomitant]
     Indication: HYPERTENSION
     Route: 048
  4. ACETAMINOPHEN [Concomitant]
     Indication: PAIN
  5. DIAMICRON [Concomitant]
     Indication: DIABETES MELLITUS
     Route: 048
  6. RIBAVIRIN [Concomitant]
     Indication: HEPATITIS C
     Route: 048
     Dates: start: 20110514
  7. VX-950 [Suspect]
     Indication: HEPATITIS C
     Route: 048
     Dates: start: 20110514, end: 20110809
  8. AMLODIPINE BESYLATE [Concomitant]
     Indication: HYPERTENSION
     Route: 048
  9. PEGINTERFERON ALFA-2A [Concomitant]
     Indication: HEPATITIS C
     Route: 058

REACTIONS (5)
  - TOXIC SKIN ERUPTION [None]
  - URTICARIA [None]
  - LICHENOID KERATOSIS [None]
  - ECZEMA [None]
  - RASH [None]
